FAERS Safety Report 4768680-9 (Version None)
Quarter: 2005Q3

REPORT INFORMATION
  Report Type: 
  Country: None (occurrence: None)
  Receive Date: 20050913
  Receipt Date: 20050902
  Transmission Date: 20060218
  Serious: Yes (Other)
  Sender: FDA-Public Use
  Company Number: 2005124182

PATIENT
  Age: 67 Year
  Sex: Female
  Weight: 136.0791 kg

DRUGS (9)
  1. LIPITOR [Suspect]
     Indication: BLOOD CHOLESTEROL
     Dosage: 40 MG (1 IN 1 D)
  2. LASIX [Concomitant]
  3. TOPROL XL (METROPROLOL SUCCINATE) [Concomitant]
  4. ZESTRIL [Concomitant]
  5. ZOLOFT [Concomitant]
  6. ACETYLSALICYLIC ACID SRT [Concomitant]
  7. POTASSIUM (POTASSIUM) [Concomitant]
  8. TRILISATE (CHOLINE SALICYLATE, MAGNESIUM SALICYLATE) [Concomitant]
  9. STOOL SOFTENER (DOCUSATE SODIUM) [Concomitant]

REACTIONS (2)
  - CATARACT [None]
  - FLATULENCE [None]
